FAERS Safety Report 24606263 (Version 2)
Quarter: 2024Q4

REPORT INFORMATION
  Report Type: Report from Study
  Country: US (occurrence: US)
  Receive Date: 20241112
  Receipt Date: 20241202
  Transmission Date: 20250114
  Serious: Yes (Hospitalization, Other)
  Sender: ABBVIE
  Company Number: US-ABBVIE-5996307

PATIENT
  Age: 60 Year
  Sex: Female
  Weight: 120 kg

DRUGS (2)
  1. RINVOQ [Suspect]
     Active Substance: UPADACITINIB
     Indication: Rheumatoid arthritis
     Dosage: FORM STRENGTH: 30 MILLIGRAM
     Route: 048
     Dates: start: 20241124
  2. RINVOQ [Suspect]
     Active Substance: UPADACITINIB
     Indication: Rheumatoid arthritis
     Dosage: FORM STRENGTH: 30 MILLIGRAM
     Route: 048
     Dates: end: 20241111

REACTIONS (6)
  - Osteoarthritis [Recovering/Resolving]
  - Gait inability [Recovering/Resolving]
  - Exercise tolerance decreased [Recovered/Resolved]
  - Arthralgia [Recovering/Resolving]
  - Procedural pain [Unknown]
  - Pain [Unknown]

NARRATIVE: CASE EVENT DATE: 20200101
